FAERS Safety Report 4980515-8 (Version None)
Quarter: 2006Q2

REPORT INFORMATION
  Report Type: 
  Country: None (occurrence: None)
  Receive Date: 20060424
  Receipt Date: 20060320
  Transmission Date: 20061013
  Serious: Yes (Other)
  Sender: FDA-Public Use
  Company Number: GB-GLAXOSMITHKLINE-B0416364A

PATIENT

DRUGS (1)
  1. NYTOL ONE A NIGHT CAPLETS 50MG [Suspect]
     Dosage: 50MG SEE DOSAGE TEXT
     Route: 048

REACTIONS (3)
  - DRUG ABUSER [None]
  - INTENTIONAL DRUG MISUSE [None]
  - NO ADVERSE DRUG EFFECT [None]
